FAERS Safety Report 11213712 (Version 1)
Quarter: 2015Q2

REPORT INFORMATION
  Report Type: Spontaneous
  Country: US (occurrence: US)
  Receive Date: 20150623
  Receipt Date: 20150623
  Transmission Date: 20150821
  Serious: No
  Sender: FDA-Public Use
  Company Number: US-MYLANLABS-2014M1009233

PATIENT
  Age: 70 Year
  Sex: Male
  Weight: 43 kg

DRUGS (10)
  1. TYLENOL [Concomitant]
     Active Substance: ACETAMINOPHEN
     Dosage: TWO 500MG TABLETS THREE TIMES A DAY
  2. LEFLUNOMIDE. [Suspect]
     Active Substance: LEFLUNOMIDE
  3. PROPRANOLOL [Concomitant]
     Active Substance: PROPRANOLOL\PROPRANOLOL HYDROCHLORIDE
     Indication: HEART RATE INCREASED
     Dosage: 5MG (HALF OF A 10MG) A DAY
  4. METHYLPREDNISOLONE. [Concomitant]
     Active Substance: METHYLPREDNISOLONE
     Dosage: ONE 5-6MG TABLET A DAY
  5. HUMIRA [Suspect]
     Active Substance: ADALIMUMAB
  6. PROXIL [Suspect]
     Active Substance: PROGLUMETACIN MALEATE
  7. METHOTREXATE [Suspect]
     Active Substance: METHOTREXATE
  8. ENBREL [Suspect]
     Active Substance: ETANERCEPT
  9. ORENCIA [Suspect]
     Active Substance: ABATACEPT
  10. LORAZEPAM. [Concomitant]
     Active Substance: LORAZEPAM
     Indication: MUSCULOSKELETAL DISCOMFORT
     Dosage: TAKES 1 TO 1.5 TABLETS A DAY

REACTIONS (2)
  - Drug ineffective [Unknown]
  - Unevaluable event [Unknown]
